FAERS Safety Report 4618242-9 (Version None)
Quarter: 2005Q1

REPORT INFORMATION
  Report Type: 
  Country: None (occurrence: None)
  Receive Date: 20050324
  Receipt Date: 20050126
  Transmission Date: 20050727
  Serious: Yes (Hospitalization)
  Sender: FDA-Public Use
  Company Number: IL-ABBOTT-05P-082-0289310-00

PATIENT
  Age: 34 Year
  Sex: Male
  Weight: 60 kg

DRUGS (4)
  1. KALETRA [Suspect]
     Indication: HIV INFECTION
     Route: 048
     Dates: start: 20050106
  2. LAMIVUDINE [Concomitant]
     Indication: HIV INFECTION
  3. STAVUDINE [Concomitant]
     Indication: HIV INFECTION
  4. BACTRIM [Concomitant]
     Indication: DRUG USE FOR UNKNOWN INDICATION

REACTIONS (3)
  - ADVERSE DRUG REACTION [None]
  - AGEUSIA [None]
  - NAUSEA [None]
